FAERS Safety Report 22251755 (Version 1)
Quarter: 2023Q2

REPORT INFORMATION
  Report Type: Spontaneous
  Country: CN (occurrence: CN)
  Receive Date: 20230425
  Receipt Date: 20230425
  Transmission Date: 20230722
  Serious: Yes (Other)
  Sender: FDA-Public Use
  Company Number: CN-ABBVIE-4739254

PATIENT
  Age: 80 Year
  Sex: Female

DRUGS (2)
  1. VENCLEXTA [Suspect]
     Active Substance: VENETOCLAX
     Indication: Acute myeloid leukaemia recurrent
     Dosage: DAY 1+2 50 MG
     Route: 048
     Dates: start: 20230314, end: 20230315
  2. VENCLEXTA [Suspect]
     Active Substance: VENETOCLAX
     Indication: Acute myeloid leukaemia recurrent
     Dosage: FROM DAY 3 TO DAY 28 100MG
     Route: 048
     Dates: start: 20230316, end: 20230413

REACTIONS (3)
  - Agranulocytosis [Unknown]
  - Drug ineffective [Unknown]
  - Leukocytosis [Unknown]

NARRATIVE: CASE EVENT DATE: 20230314
